FAERS Safety Report 9180026 (Version 2)
Quarter: 2013Q2

REPORT INFORMATION
  Report Type: Spontaneous
  Country: US (occurrence: US)
  Receive Date: 20130321
  Receipt Date: 20130502
  Transmission Date: 20140414
  Serious: Yes (Other)
  Sender: FDA-Public Use
  Company Number: US-PFIZER INC-2013091178

PATIENT
  Age: 77 Year
  Sex: Female
  Weight: 70.3 kg

DRUGS (13)
  1. LYRICA [Suspect]
     Indication: DIABETIC NEUROPATHY
     Dosage: 100 MG, 2X/DAY
     Route: 048
     Dates: start: 201301, end: 2013
  2. LYRICA [Suspect]
     Dosage: 100 MG, 1X/DAY
     Route: 048
     Dates: start: 2013
  3. METFORMIN [Concomitant]
     Dosage: 750 MG, 2X/DAY
  4. ALLOPURINOL [Concomitant]
     Dosage: 300 MG, 1X/DAY
  5. CARVEDILOL [Concomitant]
     Dosage: 12.5 MG, 2X/DAY
  6. LEVOTHYROXINE [Concomitant]
     Indication: THYROID DISORDER
     Dosage: 88 UG, 1X/DAY
  7. LOSARTAN [Concomitant]
     Dosage: 50 MG, 1X/DAY
  8. CLOPIDOGREL [Concomitant]
     Dosage: 75 MG, 1X/DAY
  9. RANEXA [Concomitant]
     Dosage: 500 MG, 1X/DAY
  10. ASPIRIN [Concomitant]
     Dosage: 85 MG, 1X/DAY
  11. OMEPRAZOLE [Concomitant]
     Dosage: 20 MG, 1X/DAY
  12. ISOSORBIDE [Concomitant]
     Dosage: 30 MG, 1X/DAY
  13. NITROFURANTOIN [Concomitant]
     Dosage: 100 MG, 1X/DAY

REACTIONS (3)
  - Loss of consciousness [Not Recovered/Not Resolved]
  - Dizziness [Not Recovered/Not Resolved]
  - Neuropathy peripheral [Unknown]
